FAERS Safety Report 25208029 (Version 3)
Quarter: 2025Q2

REPORT INFORMATION
  Report Type: Spontaneous
  Country: JP (occurrence: JP)
  Receive Date: 20250417
  Receipt Date: 20250616
  Transmission Date: 20250716
  Serious: No
  Sender: BOEHRINGER INGELHEIM
  Company Number: JP-NBI-2025-BI-014545

PATIENT
  Age: 76 Year
  Sex: Male

DRUGS (2)
  1. OFEV [Suspect]
     Active Substance: NINTEDANIB
     Indication: Interstitial lung disease
  2. OFEV [Suspect]
     Active Substance: NINTEDANIB
     Dates: start: 20250511, end: 20250511

REACTIONS (20)
  - Spinal deformity [Not Recovered/Not Resolved]
  - Back pain [Not Recovered/Not Resolved]
  - Diarrhoea [Recovered/Resolved]
  - Accidental overdose [Unknown]
  - Back pain [Recovered/Resolved]
  - Hypoacusis [Not Recovered/Not Resolved]
  - Lung opacity [Not Recovered/Not Resolved]
  - Weight decreased [Not Recovered/Not Resolved]
  - Musculoskeletal pain [Unknown]
  - Pain in extremity [Unknown]
  - Diarrhoea [Not Recovered/Not Resolved]
  - Oxygen saturation decreased [Not Recovered/Not Resolved]
  - Dizziness [Not Recovered/Not Resolved]
  - Nasal discomfort [Not Recovered/Not Resolved]
  - Tympanic membrane perforation [Unknown]
  - Nose deformity [Unknown]
  - Back pain [Recovering/Resolving]
  - Epistaxis [Recovered/Resolved]
  - Dyspnoea [Not Recovered/Not Resolved]
  - Memory impairment [Not Recovered/Not Resolved]

NARRATIVE: CASE EVENT DATE: 20250309
